FAERS Safety Report 9031573 (Version 2)
Quarter: 2013Q1

REPORT INFORMATION
  Report Type: Report from Study
  Country: FR (occurrence: FR)
  Receive Date: 20130124
  Receipt Date: 20130212
  Transmission Date: 20140127
  Serious: Yes (Hospitalization)
  Sender: FDA-Public Use
  Company Number: FR-ROCHE-1182262

PATIENT
  Age: 69 Year
  Sex: Female

DRUGS (11)
  1. RITUXIMAB [Suspect]
     Indication: B-CELL LYMPHOMA
     Route: 065
     Dates: start: 20070606
  2. RITUXIMAB [Suspect]
     Route: 065
     Dates: start: 20070613
  3. RITUXIMAB [Suspect]
     Route: 065
     Dates: start: 20070620
  4. RITUXIMAB [Suspect]
     Route: 065
     Dates: start: 20070628
  5. RITUXIMAB [Suspect]
     Route: 065
     Dates: start: 20071003
  6. RITUXIMAB [Suspect]
     Route: 065
     Dates: start: 20071217
  7. RITUXIMAB [Suspect]
     Route: 065
     Dates: start: 20080310
  8. RITUXIMAB [Suspect]
     Route: 065
     Dates: start: 20080602
  9. RITUXIMAB [Suspect]
     Route: 065
     Dates: start: 20080904
  10. RITUXIMAB [Suspect]
     Route: 065
     Dates: start: 20081211
  11. RITUXIMAB [Suspect]
     Route: 065
     Dates: start: 20090312

REACTIONS (1)
  - Depression [Unknown]
